FAERS Safety Report 5080481-3 (Version None)
Quarter: 2006Q3

REPORT INFORMATION
  Report Type: 
  Country: None (occurrence: None)
  Receive Date: 20060809
  Receipt Date: 20060802
  Transmission Date: 20061208
  Serious: Yes (Hospitalization)
  Sender: FDA-Public Use
  Company Number: 200610780BYL

PATIENT
  Age: 72 Year
  Sex: Male
  Weight: 76 kg

DRUGS (1)
  1. GLUCOBAY [Suspect]
     Indication: DIABETES MELLITUS
     Dosage: 150 MG, TOTAL DAILY, ORAL
     Route: 048
     Dates: start: 20040608, end: 20051025

REACTIONS (1)
  - PNEUMATOSIS INTESTINALIS [None]
